FAERS Safety Report 15656658 (Version 2)
Quarter: 2018Q4

REPORT INFORMATION
  Report Type: Report from Study
  Country: US (occurrence: US)
  Receive Date: 20181126
  Receipt Date: 20181230
  Transmission Date: 20190205
  Serious: No
  Sender: FDA-Public Use
  Company Number: PHEH2018US049092

PATIENT
  Sex: Female

DRUGS (1)
  1. AFINITOR [Suspect]
     Active Substance: EVEROLIMUS
     Indication: ANGIOMYOLIPOMA
     Dosage: 10 MG, QD
     Route: 048
     Dates: start: 20180928

REACTIONS (8)
  - Diarrhoea [Unknown]
  - Insomnia [Unknown]
  - Oral pain [Recovering/Resolving]
  - Epistaxis [Unknown]
  - Constipation [Unknown]
  - Blister [Unknown]
  - Decreased appetite [Unknown]
  - Glossodynia [Unknown]
